FAERS Safety Report 7351530-4 (Version None)
Quarter: 2011Q1

REPORT INFORMATION
  Report Type: 
  Country: None (occurrence: None)
  Receive Date: 20110314
  Receipt Date: 20110310
  Transmission Date: 20110831
  Serious: Yes (Hospitalization)
  Sender: FDA-Public Use
  Company Number: US-RB-017989-10

PATIENT
  Age: 47 Year
  Sex: Male

DRUGS (1)
  1. SUBOXONE [Suspect]
     Indication: PRODUCT USED FOR UNKNOWN INDICATION
     Dosage: DOSING INFORMATION UNKNOWN
     Route: 065

REACTIONS (11)
  - DIABETES MELLITUS [None]
  - HYPERHIDROSIS [None]
  - CONSTIPATION [None]
  - ANGIOPATHY [None]
  - HYPERTENSION [None]
  - CHEST PAIN [None]
  - CARDIAC DISORDER [None]
  - DRUG WITHDRAWAL SYNDROME [None]
  - INTENTIONAL DRUG MISUSE [None]
  - ANXIETY [None]
  - SUBSTANCE ABUSE [None]
